FAERS Safety Report 14181987 (Version 5)
Quarter: 2018Q1

REPORT INFORMATION
  Report Type: Report from Study
  Country: CA (occurrence: CA)
  Receive Date: 20171113
  Receipt Date: 20180301
  Transmission Date: 20180508
  Serious: No
  Sender: FDA-Public Use
  Company Number: CA-AMGEN-CANSL2017126895

PATIENT
  Age: 46 Year
  Sex: Female
  Weight: 96 kg

DRUGS (2)
  1. KYPROLIS [Suspect]
     Active Substance: CARFILZOMIB
     Indication: PLASMA CELL MYELOMA
     Dosage: 56 MG, ODX2X3 WEEKS
     Route: 042
     Dates: start: 201701, end: 2017
  2. KYPROLIS [Suspect]
     Active Substance: CARFILZOMIB
     Dosage: 56 MG, ODX2X3 WEEKS
     Route: 042
     Dates: start: 20170816

REACTIONS (6)
  - Fatigue [Not Recovered/Not Resolved]
  - Somnolence [Not Recovered/Not Resolved]
  - Dry throat [Recovered/Resolved]
  - Malaise [Not Recovered/Not Resolved]
  - Cough [Recovered/Resolved]
  - Dry mouth [Not Recovered/Not Resolved]

NARRATIVE: CASE EVENT DATE: 2017
